FAERS Safety Report 15995396 (Version 1)
Quarter: 2019Q1

REPORT INFORMATION
  Report Type: Spontaneous
  Country: US (occurrence: US)
  Receive Date: 20190222
  Receipt Date: 20190222
  Transmission Date: 20190418
  Serious: No
  Sender: FDA-Public Use
  Company Number: US-EISAI MEDICAL RESEARCH-EC-2019-051893

PATIENT
  Sex: Female

DRUGS (2)
  1. BELVIQ [Suspect]
     Active Substance: LORCASERIN HYDROCHLORIDE
     Indication: WEIGHT DECREASED
     Dosage: 10 MG
     Route: 048
     Dates: start: 20190207, end: 20190207
  2. BELVIQ [Suspect]
     Active Substance: LORCASERIN HYDROCHLORIDE
     Route: 048
     Dates: start: 20190208, end: 20190208

REACTIONS (6)
  - Headache [Recovered/Resolved]
  - Nausea [Recovered/Resolved]
  - Vision blurred [Recovered/Resolved]
  - Asthenia [Unknown]
  - Feeling abnormal [Recovered/Resolved]
  - Insomnia [Recovered/Resolved]

NARRATIVE: CASE EVENT DATE: 20190207
